FAERS Safety Report 23610622 (Version 1)
Quarter: 2024Q1

REPORT INFORMATION
  Report Type: Report from Study
  Country: DE (occurrence: DE)
  Receive Date: 20240308
  Receipt Date: 20240308
  Transmission Date: 20240410
  Serious: Yes (Life-Threatening, Hospitalization, Other)
  Sender: FDA-Public Use
  Company Number: DE-BAYER-2014-131455

PATIENT
  Age: 74 Year
  Sex: Male
  Weight: 103 kg

DRUGS (26)
  1. RIVAROXABAN [Suspect]
     Active Substance: RIVAROXABAN
     Indication: Product used for unknown indication
     Route: 048
  2. RIVAROXABAN [Suspect]
     Active Substance: RIVAROXABAN
     Route: 048
  3. ASPIRIN [Concomitant]
     Active Substance: ASPIRIN
     Dosage: 100 MG, OM
     Route: 065
     Dates: start: 20140807
  4. ASPIRIN [Concomitant]
     Active Substance: ASPIRIN
     Dosage: EVERY MORNING
     Route: 065
     Dates: start: 20140805
  5. ASPIRIN [Concomitant]
     Active Substance: ASPIRIN
     Route: 065
     Dates: start: 20140807
  6. HEPARIN [Concomitant]
     Active Substance: HEPARIN SODIUM
     Route: 042
     Dates: start: 20140802, end: 20140802
  7. HEPARIN [Concomitant]
     Active Substance: HEPARIN SODIUM
     Dates: start: 20140802, end: 20140802
  8. HEPARIN [Concomitant]
     Active Substance: HEPARIN SODIUM
     Dates: start: 20140802, end: 20140802
  9. HEPARIN [Concomitant]
     Active Substance: HEPARIN SODIUM
     Dates: start: 20140802, end: 20140802
  10. HEPARIN [Concomitant]
     Active Substance: HEPARIN SODIUM
     Dates: start: 20140802, end: 20140803
  11. HEPARIN [Concomitant]
     Active Substance: HEPARIN SODIUM
     Dates: start: 20140805, end: 20140806
  12. HEPARIN [Concomitant]
     Active Substance: HEPARIN SODIUM
     Dates: start: 20140806, end: 20140806
  13. HEPARIN [Concomitant]
     Active Substance: HEPARIN SODIUM
     Dates: start: 20140806, end: 20140807
  14. HEPARIN [Concomitant]
     Active Substance: HEPARIN SODIUM
     Dosage: 1000 IU PER HOUR
     Dates: start: 20140803, end: 20140803
  15. HEPARIN [Concomitant]
     Active Substance: HEPARIN SODIUM
     Dates: start: 20140407
  16. HEPARIN [Concomitant]
     Active Substance: HEPARIN SODIUM
     Dosage: 1200 IU PER HOUR
     Dates: start: 20140803, end: 20140804
  17. HEPARIN [Concomitant]
     Active Substance: HEPARIN SODIUM
     Dosage: 1600 IU PER HOUR
     Dates: start: 20140804, end: 20140804
  18. HEPARIN [Concomitant]
     Active Substance: HEPARIN SODIUM
     Dosage: 1000 IU PER HOUR
     Dates: start: 20140804, end: 20140804
  19. HEPARIN [Concomitant]
     Active Substance: HEPARIN SODIUM
     Dosage: 2000 IU PER HOUR
     Dates: end: 20140807
  20. GELAFUNDIN [Concomitant]
     Dates: start: 20140801
  21. GELAFUNDIN [Concomitant]
     Dates: start: 20140804
  22. GELAFUNDIN [Concomitant]
     Dates: start: 20140804
  23. ASCORBIC ACID [Concomitant]
     Active Substance: ASCORBIC ACID
     Route: 065
     Dates: end: 20140805
  24. ASCORBIC ACID [Concomitant]
     Active Substance: ASCORBIC ACID
     Dates: start: 20140808
  25. ASCORBIC ACID [Concomitant]
     Active Substance: ASCORBIC ACID
     Dosage: 500 MG, UNK
     Dates: end: 20140805
  26. ASCORBIC ACID [Concomitant]
     Active Substance: ASCORBIC ACID
     Dosage: 500 UNK, UNK
     Dates: end: 20140808

REACTIONS (15)
  - Cardiogenic shock [Unknown]
  - Acute myocardial infarction [Not Recovered/Not Resolved]
  - Post procedural haemorrhage [Recovered/Resolved with Sequelae]
  - Pericardial haemorrhage [Recovered/Resolved with Sequelae]
  - Nervous system disorder [Unknown]
  - Coma [Unknown]
  - General physical health deterioration [Unknown]
  - Left ventricular dysfunction [Unknown]
  - Ventricular fibrillation [Unknown]
  - Coronary artery bypass [Unknown]
  - Deformity thorax [Recovered/Resolved with Sequelae]
  - Acute kidney injury [Unknown]
  - Renal failure [Recovered/Resolved]
  - Somnolence [Recovered/Resolved]
  - Ventricular fibrillation [Recovered/Resolved]

NARRATIVE: CASE EVENT DATE: 20140731
